FAERS Safety Report 9512135 (Version 1)
Quarter: 2013Q3

REPORT INFORMATION
  Report Type: Spontaneous
  Country: GB (occurrence: None)
  Receive Date: 20130906
  Receipt Date: 20130906
  Transmission Date: 20140515
  Serious: Yes (Hospitalization, Other)
  Sender: FDA-Public Use
  Company Number: AUR-APL-2013-07265

PATIENT
  Age: 66 Year
  Sex: Male

DRUGS (9)
  1. CITALOPRAM [Suspect]
     Dosage: 20 MG (20 MG,  1 IN 1 D), ORAL
  2. QUETIAPINE (QUETIAPINE) [Suspect]
     Dosage: 200 MG, (100 MG, 2 IN 1 D), ORAL
  3. BENDROFLUMETHIAZIDE (BENDROFLUMETHIAZIDE) [Suspect]
     Dosage: 2.5 MG (2.5 MG, 1 IN 1 D), ORAL
  4. AMITRIPTYLINE (AMITRIPTYLINE) [Suspect]
     Dosage: 10 MG (10 MG, 1 IN 1 D), ORAL
  5. AMOXICILLIN (AMOXICILLIN) [Concomitant]
  6. FELODIPINE (FELODIPINE) [Concomitant]
  7. SIMVASTATIN (SIMVASTATIN) [Concomitant]
  8. TESTOGEL (TESTOSTERONE) [Concomitant]
  9. TRAMADOL (TRAMADOL) [Suspect]

REACTIONS (3)
  - Confusional state [None]
  - Balance disorder [None]
  - Hyponatraemia [None]
